FAERS Safety Report 7095451-3 (Version None)
Quarter: 2010Q4

REPORT INFORMATION
  Report Type: 
  Country: None (occurrence: None)
  Receive Date: 20101103
  Receipt Date: 20101019
  Transmission Date: 20110411
  Serious: Yes (Hospitalization)
  Sender: FDA-Public Use
  Company Number: 2010SA041772

PATIENT
  Age: 58 Year
  Sex: Male

DRUGS (12)
  1. CISPLATIN / UNKNOWN / UNKNOWN (CISPLATIN) [Suspect]
     Indication: NON-SMALL CELL LUNG CANCER STAGE IV
     Dosage: SEE IMAGE
     Route: 041
     Dates: start: 20100629, end: 20100629
  2. GEMCITABINE [Suspect]
     Indication: NON-SMALL CELL LUNG CANCER STAGE IV
     Dosage: SEE IMAGE
     Route: 041
     Dates: start: 20100706, end: 20100706
  3. GRANISETRON (GRANISETRON) [Concomitant]
  4. DEXAMETHASONE [Concomitant]
  5. POTASSIUM CHLORIDE [Concomitant]
  6. MAGNESIUM SULFATE [Concomitant]
  7. I.V. SOLUTIONS (I.V. SOLUTIONS) [Concomitant]
  8. MANNITOL [Concomitant]
  9. PERFALGAN (PARACETAMOL) [Concomitant]
  10. TACHIPIRINA (PARACETAMOL) [Concomitant]
  11. LEVOFLOXACIN [Concomitant]
  12. CEFTRIAXONE [Concomitant]

REACTIONS (11)
  - ADRENAL DISORDER [None]
  - BONE LESION [None]
  - HEPATIC LESION [None]
  - INTESTINAL OBSTRUCTION [None]
  - MALIGNANT NEOPLASM PROGRESSION [None]
  - METASTASES TO PERITONEUM [None]
  - NON-SMALL CELL LUNG CANCER STAGE IV [None]
  - PANCYTOPENIA [None]
  - PERICARDIAL EFFUSION [None]
  - PYREXIA [None]
  - THROMBOSIS [None]
